FAERS Safety Report 4910414-9 (Version None)
Quarter: 2006Q1

REPORT INFORMATION
  Report Type: 
  Country: None (occurrence: None)
  Receive Date: 20060209
  Receipt Date: 20060123
  Transmission Date: 20060701
  Serious: Yes (Hospitalization, Disabling)
  Sender: FDA-Public Use
  Company Number: 376876

PATIENT
  Age: 17 Year
  Sex: Male
  Weight: 128.8 kg

DRUGS (1)
  1. ACCUTANE [Suspect]
     Indication: ACNE
     Dates: start: 19850615

REACTIONS (14)
  - ANAEMIA [None]
  - ANAL FISSURE [None]
  - ANXIETY [None]
  - BARRETT'S OESOPHAGUS [None]
  - COLITIS ULCERATIVE [None]
  - DEPRESSION [None]
  - DYSPEPSIA [None]
  - GASTROINTESTINAL DISORDER [None]
  - HAEMORRHOIDS [None]
  - IRRITABLE BOWEL SYNDROME [None]
  - MULTI-ORGAN DISORDER [None]
  - PANIC ATTACK [None]
  - PILONIDAL CYST [None]
  - PROCTITIS ULCERATIVE [None]
